FAERS Safety Report 5023866-3 (Version None)
Quarter: 2006Q2

REPORT INFORMATION
  Report Type: 
  Country: None (occurrence: None)
  Receive Date: 20060612
  Receipt Date: 20060605
  Transmission Date: 20061013
  Serious: Yes (Hospitalization, Other)
  Sender: FDA-Public Use
  Company Number: GR-BRISTOL-MYERS SQUIBB COMPANY-13401435

PATIENT
  Age: 70 Year
  Sex: Male

DRUGS (3)
  1. METFORMIN HYDROCHLORIDE [Suspect]
     Indication: DIABETES MELLITUS NON-INSULIN-DEPENDENT
  2. FUROSEMIDE [Concomitant]
  3. DICLOFENAC POTASSIUM [Concomitant]

REACTIONS (10)
  - ABDOMINAL DISCOMFORT [None]
  - CARDIAC FAILURE CONGESTIVE [None]
  - CONFUSIONAL STATE [None]
  - DIABETIC NEPHROPATHY [None]
  - LACTIC ACIDOSIS [None]
  - MALAISE [None]
  - MYALGIA [None]
  - RENAL IMPAIRMENT [None]
  - RESPIRATORY DISTRESS [None]
  - SOMNOLENCE [None]
